FAERS Safety Report 6442416-8 (Version None)
Quarter: 2009Q4

REPORT INFORMATION
  Report Type: 
  Country: None (occurrence: None)
  Receive Date: 20091112
  Receipt Date: 20091105
  Transmission Date: 20100525
  Serious: Yes (Hospitalization)
  Sender: FDA-Public Use
  Company Number: 2009SP034543

PATIENT
  Age: 56 Year
  Sex: Female

DRUGS (6)
  1. MIRTAZAPINE [Suspect]
     Indication: DEPRESSION
     Dosage: 15 MG; QD; PO, 30 MG; QD; PO
     Route: 048
     Dates: start: 20090902, end: 20090903
  2. MIRTAZAPINE [Suspect]
     Indication: DEPRESSION
     Dosage: 15 MG; QD; PO, 30 MG; QD; PO
     Route: 048
     Dates: start: 20090904
  3. FLUOXETINE HCL [Suspect]
     Indication: DEPRESSION
     Dosage: 30 MG; QD; PO
     Route: 048
  4. TRIMINEURIN (TRIMIPRAMINE MALEATE) [Suspect]
     Indication: DEPRESSION
     Dosage: 50 MG; QD; PO, 100 MG; QD; PO
     Route: 048
     Dates: start: 20090916, end: 20090923
  5. TRIMINEURIN (TRIMIPRAMINE MALEATE) [Suspect]
     Indication: DEPRESSION
     Dosage: 50 MG; QD; PO, 100 MG; QD; PO
     Route: 048
     Dates: start: 20090924
  6. IBUPROFEN TABLETS [Concomitant]

REACTIONS (5)
  - BLOOD CHOLESTEROL INCREASED [None]
  - DRUG INTERACTION [None]
  - NO THERAPEUTIC RESPONSE [None]
  - OEDEMA PERIPHERAL [None]
  - TENSION [None]
